FAERS Safety Report 10166444 (Version 1)
Quarter: 2014Q2

REPORT INFORMATION
  Report Type: Spontaneous
  Country: US (occurrence: US)
  Receive Date: 20140512
  Receipt Date: 20140512
  Transmission Date: 20141212
  Serious: Yes (Other)
  Sender: FDA-Public Use
  Company Number: US-BAYER-2014-069116

PATIENT
  Sex: Female

DRUGS (2)
  1. YASMIN [Suspect]
     Dosage: UNK
     Dates: start: 2012
  2. YAZ [Suspect]
     Dosage: UNK
     Dates: start: 2012

REACTIONS (5)
  - Thrombosis [None]
  - Injury [None]
  - Pain [None]
  - Fear of disease [None]
  - Pain [None]
